FAERS Safety Report 8942597 (Version 1)
Quarter: 2012Q4

REPORT INFORMATION
  Report Type: Spontaneous
  Country: CA (occurrence: None)
  Receive Date: 20121123
  Receipt Date: 20121123
  Transmission Date: 20130627
  Serious: Yes (Other)
  Sender: FDA-Public Use
  Company Number: 2012-17806

PATIENT
  Age: 71 Year
  Sex: Female

DRUGS (4)
  1. LETROZOLE [Suspect]
     Indication: DRUG USE FOR UNKNOWN INDICATION
     Dates: start: 2000
  2. EXEMESTANE [Suspect]
     Indication: DRUG USE FOR UNKNOWN INDICATION
     Dates: start: 2011
  3. CAPECITABINE [Suspect]
  4. TAMOXIFEN [Suspect]

REACTIONS (2)
  - Breast cancer female [None]
  - Malignant neoplasm progression [None]
